FAERS Safety Report 22315600 (Version 1)
Quarter: 2023Q2

REPORT INFORMATION
  Report Type: Spontaneous
  Country: US (occurrence: US)
  Receive Date: 20230512
  Receipt Date: 20230512
  Transmission Date: 20230722
  Serious: Yes (Other)
  Sender: FDA-Public Use
  Company Number: US-Teikoku Pharma USA-TPU2023-00303

PATIENT
  Sex: Male

DRUGS (6)
  1. LIDOCAINE PATCH [Suspect]
     Active Substance: LIDOCAINE
     Indication: Procedural pain
     Route: 061
     Dates: start: 2000
  2. Natures Shine [Concomitant]
     Dates: start: 2013
  3. GABAPENTIN [Concomitant]
     Active Substance: GABAPENTIN
     Dates: start: 2011
  4. SOMA [Concomitant]
     Active Substance: CARISOPRODOL
     Dates: start: 1996
  5. PAMELOR [Concomitant]
     Active Substance: NORTRIPTYLINE HYDROCHLORIDE
     Dates: start: 1989
  6. MELATONIN [Concomitant]
     Active Substance: MELATONIN
     Dates: start: 2014

REACTIONS (4)
  - Product dose omission issue [Unknown]
  - Spinal fusion surgery [Unknown]
  - Subdural haematoma [Unknown]
  - Fatigue [Unknown]

NARRATIVE: CASE EVENT DATE: 20050101
